FAERS Safety Report 7366120-7 (Version None)
Quarter: 2011Q1

REPORT INFORMATION
  Report Type: 
  Country: None (occurrence: None)
  Receive Date: 20110225
  Receipt Date: 20110120
  Transmission Date: 20110831
  Serious: No
  Sender: FDA-Public Use
  Company Number: 321976

PATIENT
  Age: 53 Year
  Sex: Female

DRUGS (1)
  1. VICTOZA [Suspect]
     Indication: TYPE 2 DIABETES MELLITUS
     Dosage: 0.6 MG, QD, SUBCUTANEOUS
     Route: 058
     Dates: start: 20110114

REACTIONS (6)
  - SNEEZING [None]
  - DYSPEPSIA [None]
  - NAUSEA [None]
  - ASTHENIA [None]
  - DIARRHOEA [None]
  - DIZZINESS [None]
